FAERS Safety Report 7865026-4 (Version None)
Quarter: 2011Q4

REPORT INFORMATION
  Report Type: 
  Country: None (occurrence: None)
  Receive Date: 20111028
  Receipt Date: 20101004
  Transmission Date: 20120403
  Serious: No
  Sender: FDA-Public Use
  Company Number: US-GLAXOSMITHKLINE-A0884759A

PATIENT
  Age: 72 Year
  Sex: Male

DRUGS (12)
  1. FUROSEMIDE [Concomitant]
  2. LEVOTHYROXINE SODIUM [Concomitant]
  3. FENTANYL-100 [Concomitant]
  4. LIDODERM [Concomitant]
  5. SPIRIVA [Concomitant]
  6. IMURAN [Concomitant]
  7. COREG [Concomitant]
  8. LISINOPRIL [Concomitant]
  9. OXYGEN [Concomitant]
  10. ADVAIR DISKUS 100/50 [Suspect]
     Indication: PRODUCT USED FOR UNKNOWN INDICATION
     Dosage: 1PUFF TWICE PER DAY
     Route: 055
  11. SIMVASTATIN [Concomitant]
  12. TEMAZEPAM [Concomitant]

REACTIONS (2)
  - PRODUCT QUALITY ISSUE [None]
  - DYSPNOEA [None]
